FAERS Safety Report 9910726 (Version 3)
Quarter: 2015Q3

REPORT INFORMATION
  Report Type: Spontaneous
  Country: US (occurrence: US)
  Receive Date: 20140219
  Receipt Date: 20150812
  Transmission Date: 20151125
  Serious: No
  Sender: FDA-Public Use
  Company Number: US-GILEAD-2012-0054635

PATIENT
  Age: 34 Year
  Sex: Female

DRUGS (4)
  1. LETAIRIS [Suspect]
     Active Substance: AMBRISENTAN
     Indication: SYSTEMIC LUPUS ERYTHEMATOSUS
  2. LETAIRIS [Suspect]
     Active Substance: AMBRISENTAN
     Indication: PULMONARY HYPERTENSION
     Dosage: 5 MG, UNK
     Route: 048
     Dates: start: 20070802
  3. CIPRO                              /00697201/ [Suspect]
     Active Substance: CIPROFLOXACIN
  4. REMODULIN [Concomitant]
     Active Substance: TREPROSTINIL

REACTIONS (9)
  - Abdominal discomfort [Unknown]
  - Dizziness [Unknown]
  - Menorrhagia [Unknown]
  - Chest pain [Unknown]
  - Weight increased [Unknown]
  - Diarrhoea [Unknown]
  - Peripheral swelling [Unknown]
  - Tooth infection [Unknown]
  - Malaise [Unknown]
